FAERS Safety Report 21094956 (Version 1)
Quarter: 2022Q3

REPORT INFORMATION
  Report Type: Spontaneous
  Country: US (occurrence: None)
  Receive Date: 20220715
  Receipt Date: 20220715
  Transmission Date: 20221026
  Serious: No
  Sender: FDA-Public Use
  Company Number: None

PATIENT
  Sex: 0

DRUGS (1)
  1. AMPHETAMINE [Suspect]
     Active Substance: AMPHETAMINE
     Indication: Attention deficit hyperactivity disorder
     Dosage: FREQUENCY : TWICE A DAY;?
     Route: 048
     Dates: start: 20220715, end: 20220715

REACTIONS (5)
  - Adverse drug reaction [None]
  - Fatigue [None]
  - Headache [None]
  - Nausea [None]
  - Depression [None]

NARRATIVE: CASE EVENT DATE: 20220715
